APPROVED DRUG PRODUCT: ROPINIROLE HYDROCHLORIDE
Active Ingredient: ROPINIROLE HYDROCHLORIDE
Strength: EQ 6MG BASE
Dosage Form/Route: TABLET, EXTENDED RELEASE;ORAL
Application: A202786 | Product #003 | TE Code: AB
Applicant: ALEMBIC PHARMACEUTICALS LTD
Approved: Apr 22, 2013 | RLD: No | RS: No | Type: RX